FAERS Safety Report 20684213 (Version 1)
Quarter: 2022Q2

REPORT INFORMATION
  Report Type: Spontaneous
  Country: US (occurrence: US)
  Receive Date: 20220407
  Receipt Date: 20220407
  Transmission Date: 20220720
  Serious: No
  Sender: FDA-Public Use
  Company Number: US-PFIZER INC-202100978579

PATIENT
  Age: 78 Year
  Sex: Female
  Weight: 70.31 kg

DRUGS (1)
  1. IBRANCE [Suspect]
     Active Substance: PALBOCICLIB
     Indication: Breast cancer female
     Dosage: 125 MG, 1X/DAY (125MG, TAKING IT ONE TABLET ONCE PER DAY BY MOUTH)
     Dates: start: 20210723

REACTIONS (1)
  - Pruritus [Not Recovered/Not Resolved]
